FAERS Safety Report 9186038 (Version 1)
Quarter: 2013Q1

REPORT INFORMATION
  Report Type: Spontaneous
  Country: US (occurrence: US)
  Receive Date: 20130325
  Receipt Date: 20130325
  Transmission Date: 20140127
  Serious: Yes (Other)
  Sender: FDA-Public Use
  Company Number: US-AMGEN-USASP2013019914

PATIENT
  Age: 47 Year
  Sex: Female

DRUGS (1)
  1. ENBREL [Suspect]
     Indication: RHEUMATOID ARTHRITIS
     Dosage: 50 MG, 2 TIMES/WK
     Dates: start: 20110101

REACTIONS (5)
  - Nerve compression [Recovered/Resolved]
  - Foot fracture [Recovered/Resolved]
  - Multiple sclerosis [Not Recovered/Not Resolved]
  - Convulsion [Recovered/Resolved]
  - Fall [Recovered/Resolved]
